FAERS Safety Report 17100794 (Version 3)
Quarter: 2020Q2

REPORT INFORMATION
  Report Type: Spontaneous
  Country: US (occurrence: US)
  Receive Date: 20191202
  Receipt Date: 20200428
  Transmission Date: 20200713
  Serious: Yes (Other)
  Sender: FDA-Public Use
  Company Number: US-SA-2019SA327870

PATIENT
  Age: 62 Year
  Sex: Female
  Weight: 83 kg

DRUGS (8)
  1. CRESTOR [Concomitant]
     Active Substance: ROSUVASTATIN CALCIUM
     Dosage: UNK
     Route: 065
  2. CRESTOLIP [Concomitant]
     Dosage: UNK
     Route: 065
     Dates: start: 2004
  3. TOPROL XL [Concomitant]
     Active Substance: METOPROLOL SUCCINATE
     Dosage: UNK
     Route: 065
     Dates: start: 2004
  4. PARAPLATIN [Concomitant]
     Active Substance: CARBOPLATIN
     Indication: BREAST CANCER FEMALE
     Dosage: UNK
     Route: 065
  5. DOCETAXEL. [Suspect]
     Active Substance: DOCETAXEL
     Dosage: 75 MG/M2, Q3W
     Route: 042
     Dates: start: 20140908, end: 20140908
  6. DOCETAXEL. [Suspect]
     Active Substance: DOCETAXEL
     Indication: BREAST CANCER FEMALE
     Dosage: 75 MG/M2, Q3W
     Route: 042
     Dates: start: 20140519, end: 20140519
  7. METFORMIN [Concomitant]
     Active Substance: METFORMIN HYDROCHLORIDE
     Dosage: UNK
     Route: 065
     Dates: start: 2004
  8. HERCEPTIN [Concomitant]
     Active Substance: TRASTUZUMAB
     Dosage: UNK
     Route: 065

REACTIONS (6)
  - Psychological trauma [Unknown]
  - Emotional distress [Unknown]
  - Anxiety [Unknown]
  - Impaired quality of life [Unknown]
  - Pain [Unknown]
  - Alopecia [Recovering/Resolving]

NARRATIVE: CASE EVENT DATE: 201409
